FAERS Safety Report 5701687-3 (Version None)
Quarter: 2008Q2

REPORT INFORMATION
  Report Type: 
  Country: None (occurrence: None)
  Receive Date: 20080409
  Receipt Date: 20080409
  Transmission Date: 20081010
  Serious: Yes (Hospitalization)
  Sender: FDA-Public Use
  Company Number: None

PATIENT
  Age: 43 Year
  Sex: Male
  Weight: 54.4 kg

DRUGS (2)
  1. PROGRAF [Suspect]
     Indication: IMMUNOSUPPRESSION
     Dosage: 5 / 5.5 MG  QAM / QPM  PO
     Route: 048
     Dates: start: 20080215
  2. MYFORTIC [Suspect]
     Indication: IMMUNOSUPPRESSION
     Dosage: 720MG BID PO
     Route: 048
     Dates: start: 20080215

REACTIONS (4)
  - BLADDER OBSTRUCTION [None]
  - BLOOD CREATINE INCREASED [None]
  - HAEMOGLOBIN DECREASED [None]
  - OBSTRUCTIVE UROPATHY [None]
